FAERS Safety Report 7341212-7 (Version None)
Quarter: 2011Q1

REPORT INFORMATION
  Report Type: 
  Country: None (occurrence: None)
  Receive Date: 20110309
  Receipt Date: 20110228
  Transmission Date: 20110831
  Serious: Yes (Death, Life-Threatening, Disabling, Other)
  Sender: FDA-Public Use
  Company Number: JP-BRISTOL-MYERS SQUIBB COMPANY-15443922

PATIENT
  Age: 63 Year
  Sex: Male
  Weight: 60 kg

DRUGS (11)
  1. LYRICA [Concomitant]
     Dosage: 14-DEC-2010, DISCONTINUED
     Route: 048
     Dates: end: 20101214
  2. LOXONIN [Concomitant]
     Indication: ANALGESIC THERAPY
     Dosage: 14-DEC-2010, DISCONTINUED
     Route: 048
     Dates: start: 20101020, end: 20101214
  3. MAGMITT [Concomitant]
     Indication: CONSTIPATION PROPHYLAXIS
     Dosage: 14-DEC-2010, DISCONTINUED
     Route: 048
     Dates: start: 20101020, end: 20101214
  4. ZYLORIC [Concomitant]
     Indication: BLOOD URIC ACID DECREASED
     Route: 048
     Dates: start: 20100513, end: 20101214
  5. MAXIPIME [Suspect]
     Indication: PNEUMONIA
     Dosage: AROUND JUN09 FOR COMPLICATION OF INFECTION,17NOV10-19NOV10 FOR PYREXIA
     Route: 041
     Dates: start: 20101214, end: 20101214
  6. OXINORM [Concomitant]
  7. BLOPRESS [Concomitant]
     Dosage: 14-DEC-2010, DISCONTINUED
     Route: 048
     Dates: start: 20100513, end: 20101214
  8. OXYCONTIN [Concomitant]
     Indication: ANALGESIC THERAPY
     Dosage: 14-DEC-2010, DISCONTINUED
     Route: 048
     Dates: start: 20101020, end: 20101214
  9. MAXIPIME [Suspect]
     Indication: INFECTION
     Dosage: AROUND JUN09 FOR COMPLICATION OF INFECTION,17NOV10-19NOV10 FOR PYREXIA
     Route: 041
     Dates: start: 20101214, end: 20101214
  10. TAKEPRON [Concomitant]
     Indication: PROPHYLAXIS AGAINST GASTROINTESTINAL ULCER
     Dosage: 14-DEC-2010, DISCONTINUED
     Route: 048
     Dates: start: 20100607, end: 20101214
  11. PANVITAN [Concomitant]
     Route: 048
     Dates: start: 20100423, end: 20101214

REACTIONS (6)
  - APALLIC SYNDROME [None]
  - RESPIRATORY TRACT INFECTION [None]
  - ANAPHYLACTIC SHOCK [None]
  - SEPSIS [None]
  - NEOPLASM MALIGNANT [None]
  - CARDIO-RESPIRATORY ARREST [None]
